FAERS Safety Report 7518755-6 (Version None)
Quarter: 2011Q2

REPORT INFORMATION
  Report Type: 
  Country: None (occurrence: None)
  Receive Date: 20110523
  Receipt Date: 20110511
  Transmission Date: 20111010
  Serious: No
  Sender: FDA-Public Use
  Company Number: LTI2011A00123

PATIENT
  Age: 86 Year
  Sex: Female

DRUGS (2)
  1. NAPROXEN SODIUM [Concomitant]
  2. LANSOPRAZOLE [Suspect]
     Indication: GASTROINTESTINAL DISORDER
     Dosage: 15 MG (15 MG, 4 IN 1 WK) ORAL
     Route: 048
     Dates: end: 20110501

REACTIONS (4)
  - DIZZINESS [None]
  - ANAEMIA [None]
  - ARTHRALGIA [None]
  - VISUAL IMPAIRMENT [None]
